FAERS Safety Report 8895398 (Version 3)
Quarter: 2013Q1

REPORT INFORMATION
  Report Type: Spontaneous
  Country: US (occurrence: US)
  Receive Date: 20121108
  Receipt Date: 20130108
  Transmission Date: 20140127
  Serious: Yes (Hospitalization)
  Sender: FDA-Public Use
  Company Number: US-BRISTOL-MYERS SQUIBB COMPANY-17046798

PATIENT
  Age: 65 Year
  Sex: Female
  Weight: 69 kg

DRUGS (10)
  1. SPRYCEL [Suspect]
     Indication: CHRONIC MYELOID LEUKAEMIA
     Route: 048
  2. LISINOPRIL [Suspect]
     Dosage: 10 MG TO 20 MG ON 03NOV12
     Route: 048
  3. HYDROXYUREA [Suspect]
  4. ALLOPURINOL [Suspect]
     Route: 048
     Dates: start: 20121010
  5. LIPITOR [Concomitant]
     Route: 048
  6. FIORICET [Concomitant]
     Indication: HEADACHE
     Route: 048
  7. FOLBIC [Concomitant]
     Route: 048
  8. ASPIRIN [Concomitant]
     Route: 048
  9. BYSTOLIC [Concomitant]
     Route: 048
  10. HYDROCHLOROTHIAZIDE [Concomitant]
     Route: 048

REACTIONS (4)
  - Leukaemic retinopathy [Recovered/Resolved]
  - Urinary tract infection [Unknown]
  - Headache [Recovered/Resolved]
  - Blood pressure increased [Not Recovered/Not Resolved]
